FAERS Safety Report 8010876-7 (Version None)
Quarter: 2011Q4

REPORT INFORMATION
  Report Type: 
  Country: None (occurrence: None)
  Receive Date: 20111222
  Receipt Date: 20111213
  Transmission Date: 20120403
  Serious: Yes (Other)
  Sender: FDA-Public Use
  Company Number: AUR-APL-2011-04934

PATIENT
  Age: 20 Year
  Sex: Female

DRUGS (2)
  1. FOLIC ACID [Concomitant]
  2. LAMOTRIGINE [Suspect]
     Indication: EPILEPSY
     Dosage: 200 MG (100 MG,2 IN 1 D),ORAL
     Route: 048
     Dates: start: 20061201

REACTIONS (5)
  - HAEMATOMA [None]
  - PREGNANCY [None]
  - PLACENTAL DISORDER [None]
  - ABORTION INDUCED [None]
  - MATERNAL EXPOSURE DURING PREGNANCY [None]
